FAERS Safety Report 6698602-5 (Version None)
Quarter: 2010Q2

REPORT INFORMATION
  Report Type: 
  Country: None (occurrence: None)
  Receive Date: 20100427
  Receipt Date: 20100415
  Transmission Date: 20101027
  Serious: Yes (Other)
  Sender: FDA-Public Use
  Company Number: US-PFIZER INC-2010048517

PATIENT
  Sex: Male
  Weight: 106.58 kg

DRUGS (1)
  1. CHANTIX [Suspect]
     Indication: SMOKING CESSATION THERAPY
     Dosage: UNK
     Route: 048
     Dates: start: 20091201

REACTIONS (4)
  - AGGRESSION [None]
  - AGITATION [None]
  - DERMATILLOMANIA [None]
  - HOSTILITY [None]
